FAERS Safety Report 11071855 (Version 1)
Quarter: 2015Q2

REPORT INFORMATION
  Report Type: Spontaneous
  Country: IT (occurrence: None)
  Receive Date: 20150424
  Receipt Date: 20150424
  Transmission Date: 20150821
  Serious: Yes (Congenital Anomaly, Other)
  Sender: FDA-Public Use
  Company Number: 2015HINLIT0332

PATIENT
  Age: 28 Week
  Sex: Female
  Weight: .9 kg

DRUGS (1)
  1. ZIDOVUDINE (ZIDOVUDINE) UNKNOWN) [Suspect]
     Active Substance: ZIDOVUDINE
     Indication: IMMUNOSUPPRESSION

REACTIONS (9)
  - Cytomegalovirus infection [None]
  - Premature baby [None]
  - Ductus arteriosus premature closure [None]
  - Hypoxia [None]
  - Maternal drugs affecting foetus [None]
  - Thrombocytopenia neonatal [None]
  - Pulmonary hypertension [None]
  - Caesarean section [None]
  - Apgar score low [None]
